FAERS Safety Report 8847670 (Version 2)
Quarter: 2012Q4

REPORT INFORMATION
  Report Type: Report from Study
  Country: DE (occurrence: DE)
  Receive Date: 20121018
  Receipt Date: 20121227
  Transmission Date: 20130627
  Serious: Yes (Hospitalization)
  Sender: FDA-Public Use
  Company Number: DE-GILEAD-2012-0062766

PATIENT
  Sex: Female

DRUGS (14)
  1. RANOLAZINE [Suspect]
     Indication: ANGINA PECTORIS
     Dosage: 500 mg, BID
     Route: 048
     Dates: start: 20120919, end: 20120925
  2. RANOLAZINE [Suspect]
     Dosage: 1000 mg, BID
     Route: 048
     Dates: start: 20120926, end: 20121007
  3. ASPIRIN [Concomitant]
     Indication: CORONARY ARTERY DISEASE
     Dosage: UNK
     Dates: start: 2002
  4. LISINOPRIL [Concomitant]
     Indication: CORONARY ARTERY DISEASE
     Dosage: UNK
     Dates: start: 2006
  5. METOPROLOL [Concomitant]
     Indication: CORONARY ARTERY DISEASE
     Dosage: UNK
     Dates: start: 2010
  6. L-THYROXIN [Concomitant]
     Indication: HYPOTHYROIDISM
     Dosage: UNK
     Dates: start: 1970
  7. OMEPRAZOLE [Concomitant]
     Indication: PROPHYLAXIS
     Dosage: UNK
     Dates: start: 2010
  8. TORASEMID [Concomitant]
     Indication: OEDEMA
     Dosage: UNK
     Dates: start: 2010
  9. ALDACTONE                          /00006201/ [Concomitant]
     Indication: OEDEMA
     Dosage: UNK
     Dates: start: 2010
  10. FORADIL [Concomitant]
     Dosage: UNK
  11. SPIRIVA [Concomitant]
  12. MORPHINE [Concomitant]
  13. INSUMAN                            /00646001/ [Concomitant]
  14. GABAPENTIN [Concomitant]

REACTIONS (1)
  - Grand mal convulsion [Not Recovered/Not Resolved]
